FAERS Safety Report 25049861 (Version 1)
Quarter: 2025Q1

REPORT INFORMATION
  Report Type: Spontaneous
  Country: FR (occurrence: FR)
  Receive Date: 20250307
  Receipt Date: 20250307
  Transmission Date: 20250409
  Serious: Yes (Death, Life-Threatening, Other)
  Sender: RANBAXY
  Company Number: FR-SUN PHARMACEUTICAL INDUSTRIES LTD-2025RR-498692

PATIENT
  Age: 90 Year
  Sex: Female

DRUGS (2)
  1. ALLOPURINOL [Suspect]
     Active Substance: ALLOPURINOL
     Indication: Product used for unknown indication
     Route: 065
  2. INSULIN NOS [Suspect]
     Active Substance: INSULIN NOS
     Indication: Fulminant type 1 diabetes mellitus
     Route: 042

REACTIONS (4)
  - Drug ineffective [Fatal]
  - Drug reaction with eosinophilia and systemic symptoms [Fatal]
  - Fulminant type 1 diabetes mellitus [Fatal]
  - Pancreatitis acute [Fatal]
